FAERS Safety Report 19092916 (Version 10)
Quarter: 2021Q3

REPORT INFORMATION
  Report Type: Report from Study
  Country: US (occurrence: US)
  Receive Date: 20210405
  Receipt Date: 20210930
  Transmission Date: 20211014
  Serious: Yes (Hospitalization, Other)
  Sender: FDA-Public Use
  Company Number: NVSC2021US077004

PATIENT
  Age: 64 Year
  Sex: Female
  Weight: 83.9 kg

DRUGS (6)
  1. TREPROSTINIL. [Suspect]
     Active Substance: TREPROSTINIL
     Dosage: 34 NG/KG/MIN
     Route: 042
  2. TREPROSTINIL. [Suspect]
     Active Substance: TREPROSTINIL
     Dosage: 41 NG/KG/MIN
     Route: 042
  3. TREPROSTINIL. [Suspect]
     Active Substance: TREPROSTINIL
     Dosage: 52 NG/KG/MIN
     Route: 042
  4. TREPROSTINIL. [Suspect]
     Active Substance: TREPROSTINIL
     Dosage: UNK
     Route: 065
  5. TREPROSTINIL. [Suspect]
     Active Substance: TREPROSTINIL
     Indication: PULMONARY ARTERIAL HYPERTENSION
     Dosage: 26 NG/KG/MIN
     Route: 042
     Dates: start: 20210330
  6. SILDENAFIL CITRATE. [Concomitant]
     Active Substance: SILDENAFIL CITRATE
     Indication: PRODUCT USED FOR UNKNOWN INDICATION
     Dosage: UNK
     Route: 065

REACTIONS (14)
  - Hypersensitivity [Unknown]
  - Dizziness [Unknown]
  - Fall [Unknown]
  - Syncope [Unknown]
  - Loss of consciousness [Unknown]
  - Diarrhoea [Unknown]
  - Infusion site infection [Unknown]
  - Swelling [Unknown]
  - Pain in extremity [Unknown]
  - Device alarm issue [Unknown]
  - Spinal column injury [Unknown]
  - Pain in jaw [Unknown]
  - Head injury [Unknown]
  - Nausea [Unknown]

NARRATIVE: CASE EVENT DATE: 20210918
